FAERS Safety Report 20542809 (Version 9)
Quarter: 2022Q2

REPORT INFORMATION
  Report Type: Spontaneous
  Country: PL (occurrence: PL)
  Receive Date: 20220302
  Receipt Date: 20220517
  Transmission Date: 20220721
  Serious: Yes (Other)
  Sender: FDA-Public Use
  Company Number: PL-NOVARTISPH-NVSC2022PL048931

PATIENT
  Age: 40 Year
  Sex: Female

DRUGS (12)
  1. QUETIAPINE [Interacting]
     Active Substance: QUETIAPINE
     Indication: Depression
     Dosage: 150 MG, QD
     Route: 065
  2. QUETIAPINE [Interacting]
     Active Substance: QUETIAPINE
     Dosage: 200 MG, QD (INCREASED THE QUETIAPINE DOSE BY 50 MG, BEFORE BEDTIME)
     Route: 065
  3. ATORVASTATIN [Interacting]
     Active Substance: ATORVASTATIN
     Indication: Dyslipidaemia
     Dosage: 20 MG, QD
     Route: 065
  4. CRANBERRY [Interacting]
     Active Substance: CRANBERRY
     Indication: Dysuria
     Dosage: UNK
     Route: 065
  5. CRANBERRY [Interacting]
     Active Substance: CRANBERRY
     Indication: Vaginal discharge
  6. CRANBERRY [Interacting]
     Active Substance: CRANBERRY
     Indication: Micturition disorder
  7. FLUCONAZOLE [Interacting]
     Active Substance: FLUCONAZOLE
     Indication: Dysuria
     Dosage: 200 MG, QD
     Route: 048
  8. FLUCONAZOLE [Interacting]
     Active Substance: FLUCONAZOLE
     Indication: Vaginal discharge
  9. FLUCONAZOLE [Interacting]
     Active Substance: FLUCONAZOLE
     Indication: Micturition disorder
  10. BIOTIN [Interacting]
     Active Substance: BIOTIN
     Indication: Alopecia
     Dosage: 20 MG, QD
     Route: 065
  11. PAROXETINE [Concomitant]
     Active Substance: PAROXETINE
     Indication: Depression
     Dosage: 20 MG, QD
     Route: 065
  12. PAROXETINE [Concomitant]
     Active Substance: PAROXETINE
     Dosage: 40 MG, QD (DOSE WAS INCREASED TO 40 MG PER DAY)
     Route: 065

REACTIONS (7)
  - Drug level increased [Recovering/Resolving]
  - Leukopenia [Recovered/Resolved]
  - Hypothyroidism [Recovered/Resolved]
  - Thrombocytopenia [Recovered/Resolved]
  - Potentiating drug interaction [Unknown]
  - Food interaction [Unknown]
  - Drug ineffective for unapproved indication [Unknown]
